FAERS Safety Report 6204807-X (Version None)
Quarter: 2009Q2

REPORT INFORMATION
  Report Type: 
  Country: None (occurrence: None)
  Receive Date: 20090522
  Receipt Date: 20090512
  Transmission Date: 20091009
  Serious: Yes (Death, Hospitalization)
  Sender: FDA-Public Use
  Company Number: 2009AL002017

PATIENT
  Age: 69 Year
  Sex: Male

DRUGS (15)
  1. DIGOXIN [Suspect]
     Indication: CARDIAC FAILURE CHRONIC
     Dosage: 0.125MG, PO
     Route: 048
  2. REGLAN [Concomitant]
  3. COLACE [Concomitant]
  4. COGENTIN [Concomitant]
  5. REQUIP [Concomitant]
  6. LOPRESSOR [Concomitant]
  7. AMBIEN [Concomitant]
  8. MULTI-VITAMINS [Concomitant]
  9. ASCORBIC ACID [Concomitant]
  10. LASIX [Concomitant]
  11. POTASSIUM CHLORIDE [Concomitant]
  12. EFFEXOR [Concomitant]
  13. MIRALAX [Concomitant]
  14. PROTONIX [Concomitant]
  15. XANAX [Concomitant]

REACTIONS (17)
  - ANHEDONIA [None]
  - ATRIAL FIBRILLATION [None]
  - CARDIOPULMONARY FAILURE [None]
  - CHEST INJURY [None]
  - CONFUSIONAL STATE [None]
  - COUGH [None]
  - DIZZINESS [None]
  - ECONOMIC PROBLEM [None]
  - FALL [None]
  - HALLUCINATION [None]
  - PAIN [None]
  - PULMONARY CONGESTION [None]
  - PYREXIA [None]
  - SOMNOLENCE [None]
  - THERAPEUTIC AGENT TOXICITY [None]
  - URINARY TRACT INFECTION [None]
  - WHEEZING [None]
